FAERS Safety Report 9487003 (Version 2)
Quarter: 2013Q4

REPORT INFORMATION
  Report Type: Spontaneous
  Country: GB (occurrence: GB)
  Receive Date: 20130829
  Receipt Date: 20131202
  Transmission Date: 20140711
  Serious: Yes (Death, Hospitalization)
  Sender: FDA-Public Use
  Company Number: GB-GLAXOSMITHKLINE-B0917387A

PATIENT
  Age: 41 Year
  Sex: Female
  Weight: 57 kg

DRUGS (12)
  1. VOTRIENT [Suspect]
     Indication: GASTROINTESTINAL CARCINOMA
     Dosage: 800MG PER DAY
     Route: 048
     Dates: end: 20130430
  2. IBUPROFEN [Concomitant]
  3. DEXAMETHASONE [Concomitant]
  4. LANSOPRAZOLE [Concomitant]
  5. FENTANYL [Concomitant]
  6. SENNA [Concomitant]
  7. LACTULOSE [Concomitant]
  8. DALTEPARIN [Concomitant]
  9. HYDROXOCOBALAMIN [Concomitant]
  10. PREGABALIN [Concomitant]
  11. DIAMORPHINE [Concomitant]
  12. CYCLIZINE [Concomitant]

REACTIONS (3)
  - Sepsis [Fatal]
  - Intestinal fistula [Not Recovered/Not Resolved]
  - Fistula [Unknown]
